FAERS Safety Report 9009018 (Version 1)
Quarter: 2013Q1

REPORT INFORMATION
  Report Type: Spontaneous
  Country: US (occurrence: US)
  Receive Date: 20130111
  Receipt Date: 20130111
  Transmission Date: 20140127
  Serious: Yes (Other)
  Sender: FDA-Public Use
  Company Number: US-009507513-0909USA03401

PATIENT
  Age: 57 Year
  Sex: Female
  Weight: 95.25 kg

DRUGS (2)
  1. SINGULAIR [Suspect]
     Indication: BRONCHITIS
     Dosage: 1 DF, HS
     Route: 048
     Dates: start: 20090303, end: 20090307
  2. SINGULAIR [Suspect]
     Indication: ASTHMA

REACTIONS (3)
  - Abdominal discomfort [Unknown]
  - Diarrhoea [Unknown]
  - Vomiting [Unknown]
